FAERS Safety Report 13527982 (Version 3)
Quarter: 2017Q2

REPORT INFORMATION
  Report Type: Spontaneous
  Country: US (occurrence: US)
  Receive Date: 20170509
  Receipt Date: 20170605
  Transmission Date: 20170830
  Serious: No
  Sender: FDA-Public Use
  Company Number: US-PFIZER INC-2017201548

PATIENT
  Age: 60 Year
  Sex: Male

DRUGS (2)
  1. INLYTA [Suspect]
     Active Substance: AXITINIB
     Indication: NEOPLASM MALIGNANT
     Dosage: 7 MG, 2X/DAY (5MG + 1MG/ TAKE 1 TABLET BY MOUTH (WITH TWO 1MG TO MAKE 7MG) TWICE A DAY)
     Route: 048
     Dates: start: 201608
  2. INLYTA [Suspect]
     Active Substance: AXITINIB
     Dosage: 10 MG, 2X/DAY (2 TABLET 10 MG))
     Route: 048

REACTIONS (3)
  - Diarrhoea [Recovered/Resolved]
  - Pancreatic enzymes decreased [Unknown]
  - Hypothyroidism [Unknown]
